FAERS Safety Report 4732077-8 (Version None)
Quarter: 2005Q3

REPORT INFORMATION
  Report Type: 
  Country: None (occurrence: None)
  Receive Date: 20050722
  Receipt Date: 20040902
  Transmission Date: 20060218
  Serious: No
  Sender: FDA-Public Use
  Company Number: 04P-163-0272556-00

PATIENT

DRUGS (3)
  1. NORVIR [Suspect]
     Indication: HIV INFECTION
     Dosage: 200 MG, 1 IN 12 HR, PER ORAL
     Route: 048
  2. AMPRENAVIR [Suspect]
     Indication: HIV INFECTION
     Dosage: 100 MG, 1 IN 12 HR, ORAL
     Route: 048
  3. SAQUINAVIR [Suspect]
     Indication: HIV INFECTION
     Dosage: 1000 MG, 1 IN 12 HR, ORAL
     Route: 048

REACTIONS (4)
  - ALANINE AMINOTRANSFERASE INCREASED [None]
  - ASPARTATE AMINOTRANSFERASE INCREASED [None]
  - HEPATIC ENZYME INCREASED [None]
  - HEPATOTOXICITY [None]
